FAERS Safety Report 17339680 (Version 1)
Quarter: 2020Q1

REPORT INFORMATION
  Report Type: Spontaneous
  Country: US (occurrence: US)
  Receive Date: 20200113
  Receipt Date: 20200113
  Transmission Date: 20200409
  Serious: Yes (Hospitalization)
  Sender: FDA-Public Use
  Company Number: None

PATIENT
  Age: 84 Year
  Sex: Male
  Weight: 108 kg

DRUGS (1)
  1. HEPARIN/SODIUM CHLORIDE (HEPARIN NA 100UNT/ML/NACL 0.45% INJ) [Suspect]
     Active Substance: HEPARIN SODIUM
     Indication: DEEP VEIN THROMBOSIS
     Route: 042
     Dates: start: 20191215, end: 20191217

REACTIONS (5)
  - Abdominal pain [None]
  - Contusion [None]
  - Activated partial thromboplastin time prolonged [None]
  - Haemorrhage [None]
  - Anaemia [None]

NARRATIVE: CASE EVENT DATE: 20191217
